FAERS Safety Report 18620332 (Version 1)
Quarter: 2020Q4

REPORT INFORMATION
  Report Type: Spontaneous
  Country: US (occurrence: US)
  Receive Date: 20201215
  Receipt Date: 20201215
  Transmission Date: 20210114
  Serious: Yes (Other)
  Sender: FDA-Public Use
  Company Number: US-TEVA-2020-US-1859260

PATIENT
  Age: 57 Year
  Sex: Male

DRUGS (2)
  1. OXYCODONE/ACETAMINOPHEN [Concomitant]
     Active Substance: ACETAMINOPHEN\OXYCODONE HYDROCHLORIDE
     Indication: MERALGIA PARAESTHETICA
     Dosage: EVERY 4 HOURS AS NEEDED
     Route: 048
  2. PREGABALIN. [Suspect]
     Active Substance: PREGABALIN
     Indication: MERALGIA PARAESTHETICA
     Route: 065

REACTIONS (3)
  - Somnolence [Recovered/Resolved]
  - Sexual dysfunction [Recovered/Resolved]
  - Cognitive disorder [Recovered/Resolved]
